FAERS Safety Report 7008672-2 (Version None)
Quarter: 2010Q3

REPORT INFORMATION
  Report Type: 
  Country: None (occurrence: None)
  Receive Date: 20100921
  Receipt Date: 20100901
  Transmission Date: 20110219
  Serious: No
  Sender: FDA-Public Use
  Company Number: APP201000719

PATIENT
  Age: 41 Year
  Sex: Male

DRUGS (12)
  1. VINBLASTINE SULFATE [Suspect]
     Indication: HODGKIN'S DISEASE
     Dosage: CYCLE 1A
  2. DOXORUBICIN HCL [Concomitant]
  3. BLEOMUCIN FOR INJECTION USP, (BLEOMYCIN) [Concomitant]
  4. DACARBAZINE [Concomitant]
  5. TENOFOVIR DISOPROXIL FUMARATE [Concomitant]
  6. EMTRICITABINE [Concomitant]
  7. LOPINAVIR (LOPINAVIR) [Concomitant]
  8. RITONAVIR [Concomitant]
  9. TRIMETHOPRIM (TIRMETHOPRIM) [Concomitant]
  10. GRANULOCYTE COLONY-STIMULATING FACTOR (GRANULOCYTE COLONY STIMULATING [Concomitant]
  11. OXYCODONE HCL [Concomitant]
  12. ACETAMINOPHEN [Concomitant]

REACTIONS (3)
  - ABDOMINAL DISTENSION [None]
  - CONSTIPATION [None]
  - LARGE INTESTINE PERFORATION [None]
